FAERS Safety Report 4717876-0 (Version None)
Quarter: 2005Q3

REPORT INFORMATION
  Report Type: 
  Country: None (occurrence: None)
  Receive Date: 20050715
  Receipt Date: 20050331
  Transmission Date: 20060218
  Serious: Yes (Death)
  Sender: FDA-Public Use
  Company Number: 2005FR-00112

PATIENT
  Age: 11 Year

DRUGS (2)
  1. ACETAMINOPHEN [Suspect]
  2. VALPROIC ACID [Concomitant]

REACTIONS (3)
  - HEPATIC NECROSIS [None]
  - HEPATOCELLULAR DAMAGE [None]
  - OVERDOSE [None]
